FAERS Safety Report 17983669 (Version 1)
Quarter: 2020Q3

REPORT INFORMATION
  Report Type: Spontaneous
  Country: US (occurrence: US)
  Receive Date: 20200706
  Receipt Date: 20200706
  Transmission Date: 20201103
  Serious: Yes (Other)
  Sender: FDA-Public Use
  Company Number: US-PURACAP PHARMACEUTICAL LLC-2020EPC00214

PATIENT
  Age: 62 Year
  Sex: Female

DRUGS (2)
  1. MAXIMUM STRENGTH MUCINEX SINUS?MAX SEVERE CONGESTION AND PAIN [Suspect]
     Active Substance: ACETAMINOPHEN\GUAIFENESIN\PHENYLEPHRINE HYDROCHLORIDE
     Dosage: 1 CAPSULES
     Dates: start: 20200613, end: 20200613
  2. MAXIMUM STRENGTH MUCINEX SINUS?MAX SEVERE CONGESTION AND PAIN [Suspect]
     Active Substance: ACETAMINOPHEN\GUAIFENESIN\PHENYLEPHRINE HYDROCHLORIDE
     Dosage: 1 CAPSULES
     Dates: start: 20200614, end: 20200614

REACTIONS (4)
  - Chest discomfort [Recovered/Resolved]
  - Nausea [Recovering/Resolving]
  - Chest pain [Recovered/Resolved]
  - Dyspnoea [Recovered/Resolved]

NARRATIVE: CASE EVENT DATE: 20200613
